FAERS Safety Report 19786406 (Version 2)
Quarter: 2021Q4

REPORT INFORMATION
  Report Type: Report from Study
  Country: US (occurrence: US)
  Receive Date: 20210903
  Receipt Date: 20211112
  Transmission Date: 20220303
  Serious: Yes (Hospitalization)
  Sender: FDA-Public Use
  Company Number: US-BIOGEN-2021BI01044343

PATIENT
  Sex: Female

DRUGS (4)
  1. AVONEX [Suspect]
     Active Substance: INTERFERON BETA-1A
     Indication: Multiple sclerosis
     Dosage: ONE TIME WEEK 1
     Route: 030
     Dates: start: 20210409
  2. AVONEX [Suspect]
     Active Substance: INTERFERON BETA-1A
     Dosage: ONE TIME WEEK 2
     Route: 030
  3. AVONEX [Suspect]
     Active Substance: INTERFERON BETA-1A
     Dosage: ONE TIME WEEK 3
     Route: 030
  4. AVONEX [Suspect]
     Active Substance: INTERFERON BETA-1A
     Dosage: ONE TIME WEEK 4
     Route: 030
     Dates: start: 20210430

REACTIONS (2)
  - Multiple sclerosis relapse [Unknown]
  - Inappropriate schedule of product administration [Unknown]
